FAERS Safety Report 24207086 (Version 2)
Quarter: 2024Q3

REPORT INFORMATION
  Report Type: Spontaneous
  Country: US (occurrence: US)
  Receive Date: 20240813
  Receipt Date: 20240905
  Transmission Date: 20241017
  Serious: No
  Sender: SANOFI AVENTIS
  Company Number: US-SA-SAC20240812000903

PATIENT
  Age: 40 Year
  Sex: Female

DRUGS (2)
  1. KEVZARA [Suspect]
     Active Substance: SARILUMAB
     Indication: Rheumatoid arthritis
     Dosage: 200 MG, QOW
     Route: 058
     Dates: start: 202405
  2. ORENCIA [Concomitant]
     Active Substance: ABATACEPT
     Dosage: UNK

REACTIONS (2)
  - Stomatitis [Unknown]
  - Oral pain [Recovered/Resolved]

NARRATIVE: CASE EVENT DATE: 20240101
